FAERS Safety Report 15257746 (Version 2)
Quarter: 2018Q3

REPORT INFORMATION
  Report Type: Spontaneous
  Country: JP (occurrence: JP)
  Receive Date: 20180808
  Receipt Date: 20180912
  Transmission Date: 20181010
  Serious: Yes (Other)
  Sender: FDA-Public Use
  Company Number: PHJP2018JP014866

PATIENT
  Age: 70 Year
  Sex: Female

DRUGS (1)
  1. CARBAMAZEPINE. [Suspect]
     Active Substance: CARBAMAZEPINE
     Indication: EPILEPSY
     Dosage: UNK
     Route: 048

REACTIONS (6)
  - Stress cardiomyopathy [Unknown]
  - Ventricular hypokinesia [Unknown]
  - Renal failure [Unknown]
  - Altered state of consciousness [Unknown]
  - Atrioventricular block complete [Unknown]
  - Hypothermia [Unknown]
